FAERS Safety Report 7823954-X (Version None)
Quarter: 2011Q4

REPORT INFORMATION
  Report Type: 
  Country: None (occurrence: None)
  Receive Date: 20111019
  Receipt Date: 20111011
  Transmission Date: 20120403
  Serious: Yes (Other)
  Sender: FDA-Public Use
  Company Number: US-JNJFOC-20111005428

PATIENT
  Age: 26 Year
  Sex: Male

DRUGS (1)
  1. NUCYNTA ER [Suspect]
     Indication: PAIN
     Route: 048
     Dates: start: 20110901, end: 20111011

REACTIONS (1)
  - HYPERTENSION [None]
